FAERS Safety Report 5782443-7 (Version None)
Quarter: 2008Q2

REPORT INFORMATION
  Report Type: 
  Country: None (occurrence: None)
  Receive Date: 20080623
  Receipt Date: 20080610
  Transmission Date: 20081010
  Serious: Yes (Other)
  Sender: FDA-Public Use
  Company Number: PHEH2008US05315

PATIENT
  Age: 83 Year
  Sex: Female
  Weight: 63.492 kg

DRUGS (6)
  1. BENAZEPRIL HYDROCHLORIDE [Suspect]
  2. HYDROCHLOROTHIAZIDE [Suspect]
  3. FLOMAX [Concomitant]
  4. PROSCAR [Concomitant]
  5. GLUCOSAMINE [Concomitant]
  6. VITAMINS [Concomitant]

REACTIONS (4)
  - AMNESIA [None]
  - COUGH [None]
  - HEART RATE INCREASED [None]
  - HEART RATE IRREGULAR [None]
